FAERS Safety Report 10416933 (Version 1)
Quarter: 2014Q3

REPORT INFORMATION
  Report Type: Spontaneous
  Country: US (occurrence: None)
  Receive Date: 20140826
  Receipt Date: 20140826
  Transmission Date: 20150326
  Serious: Yes (Life-Threatening, Hospitalization)
  Sender: FDA-Public Use
  Company Number: 201408060

PATIENT
  Age: 50 Year
  Sex: Male
  Weight: 112.49 kg

DRUGS (1)
  1. TESTOPEL [Suspect]
     Active Substance: TESTOSTERONE
     Indication: PRODUCT USED FOR UNKNOWN INDICATION
     Dosage: 10 PELLETS SUBCUTANEOUS
     Route: 058
     Dates: start: 20140326

REACTIONS (1)
  - Cerebellar haemorrhage [None]

NARRATIVE: CASE EVENT DATE: 20140501
